FAERS Safety Report 12809279 (Version 1)
Quarter: 2016Q4

REPORT INFORMATION
  Report Type: Other
  Country: CA (occurrence: CA)
  Receive Date: 20161004
  Receipt Date: 20161004
  Transmission Date: 20170207
  Serious: Yes (Other)
  Sender: FDA-Public Use
  Company Number: CA-TAKEDA-2016TUS017381

PATIENT
  Age: 73 Year
  Sex: Female
  Weight: 72.11 kg

DRUGS (8)
  1. NORVASC [Concomitant]
     Active Substance: AMLODIPINE BESYLATE
  2. PREMARIN [Concomitant]
     Active Substance: ESTROGENS, CONJUGATED
  3. SYNTHROID [Concomitant]
     Active Substance: LEVOTHYROXINE SODIUM
  4. GRAVOL [Concomitant]
     Active Substance: DIMENHYDRINATE
  5. DEXILANT [Suspect]
     Active Substance: DEXLANSOPRAZOLE
     Indication: GASTROOESOPHAGEAL REFLUX DISEASE
     Dosage: UNK, QD
     Route: 048
  6. VALIUM [Concomitant]
     Active Substance: DIAZEPAM
  7. COVERSYL                           /00790702/ [Concomitant]
     Active Substance: PERINDOPRIL
  8. SENOKOT [Concomitant]
     Active Substance: SENNOSIDES

REACTIONS (32)
  - Heart rate irregular [Recovered/Resolved]
  - Dehydration [Recovered/Resolved]
  - Anxiety [Recovered/Resolved]
  - Dysuria [Recovered/Resolved]
  - Eye swelling [Recovered/Resolved]
  - Influenza like illness [Recovered/Resolved]
  - Muscle spasms [Recovered/Resolved]
  - Sinusitis [Recovered/Resolved]
  - Cough [Recovered/Resolved]
  - Hiccups [Recovered/Resolved]
  - Tremor [Recovered/Resolved]
  - Vertigo [Recovered/Resolved]
  - Thirst [Recovered/Resolved]
  - Eye irritation [Recovered/Resolved]
  - Impaired gastric emptying [Recovered/Resolved]
  - Vision blurred [Recovered/Resolved]
  - Weight increased [Recovered/Resolved]
  - Arrhythmia [Recovered/Resolved]
  - Drug effect decreased [Recovered/Resolved]
  - Defaecation urgency [Recovered/Resolved]
  - Somnolence [Recovered/Resolved]
  - Concomitant disease aggravated [Recovered/Resolved]
  - Hypertensive crisis [Recovered/Resolved]
  - Urinary incontinence [Recovered/Resolved]
  - Wheezing [Recovered/Resolved]
  - Blood glucose increased [Recovered/Resolved]
  - Swollen tongue [Recovered/Resolved]
  - Diarrhoea [Recovered/Resolved]
  - Blood thyroid stimulating hormone increased [Recovered/Resolved]
  - Chills [Recovered/Resolved]
  - Haemorrhoids [Recovered/Resolved]
  - Palpitations [Recovered/Resolved]
